FAERS Safety Report 21613539 (Version 1)
Quarter: 2022Q4

REPORT INFORMATION
  Report Type: Report from Study
  Country: US (occurrence: US)
  Receive Date: 20221118
  Receipt Date: 20221118
  Transmission Date: 20230112
  Serious: No
  Sender: FDA-Public Use
  Company Number: US-ABBVIE-22K-163-4316733-00

PATIENT
  Sex: Male

DRUGS (2)
  1. VENCLEXTA [Suspect]
     Active Substance: VENETOCLAX
     Indication: Acute myeloid leukaemia
     Dosage: 70MG DAILY FOR 8 DAYS OUT OF 28 DAY CYCLE?FORM STRENGTH: 100 MILLIGRAM?1 IN HALF DAY
     Route: 048
     Dates: start: 20210529
  2. VENCLEXTA [Suspect]
     Active Substance: VENETOCLAX
     Indication: Acute myeloid leukaemia
     Dosage: 200 MILLIGRAMS FOR 7 DAYS OUT OF 28 DAY CYCLE?FORM STRENGTH: 100 MILLIGRAM
     Route: 048

REACTIONS (7)
  - Dyspepsia [Recovered/Resolved]
  - Chapped lips [Unknown]
  - Constipation [Recovered/Resolved]
  - Hypoaesthesia [Unknown]
  - Off label use [Unknown]
  - Poor peripheral circulation [Unknown]
  - Paraesthesia [Unknown]
